FAERS Safety Report 26194428 (Version 1)
Quarter: 2025Q4

REPORT INFORMATION
  Report Type: Spontaneous
  Country: US (occurrence: US)
  Receive Date: 20251224
  Receipt Date: 20251224
  Transmission Date: 20260117
  Serious: Yes (Hospitalization, Other)
  Sender: SOMERSET THERAPEUTICS, LLC
  Company Number: US-MIT-25-75-US-2025-SOM-LIT-00510

PATIENT
  Age: 59 Year
  Sex: Female

DRUGS (2)
  1. BUPIVACAINE HYDROCHLORIDE [Suspect]
     Active Substance: BUPIVACAINE HYDROCHLORIDE
     Indication: Occipital neuralgia
     Dosage: FIRST TIME
     Route: 065
  2. BUPIVACAINE HYDROCHLORIDE [Suspect]
     Active Substance: BUPIVACAINE HYDROCHLORIDE
     Indication: Myofascial pain syndrome

REACTIONS (3)
  - Acute myocardial infarction [Recovering/Resolving]
  - Pulmonary oedema [Recovering/Resolving]
  - Left ventricular dysfunction [Recovering/Resolving]
